FAERS Safety Report 17628593 (Version 1)
Quarter: 2020Q2

REPORT INFORMATION
  Report Type: Spontaneous
  Country: JP (occurrence: JP)
  Receive Date: 20200406
  Receipt Date: 20200406
  Transmission Date: 20200713
  Serious: Yes (Other)
  Sender: FDA-Public Use
  Company Number: JP-AMGEN-JPNSP2020055207

PATIENT

DRUGS (4)
  1. IRINOTECAN [IRINOTECAN HYDROCHLORIDE] [Concomitant]
     Active Substance: IRINOTECAN HYDROCHLORIDE
     Indication: NEOPLASM MALIGNANT
     Dosage: UNK, 1X/3 WEEKS
     Route: 041
     Dates: start: 20200314, end: 20200314
  2. AVASTIN [Concomitant]
     Active Substance: BEVACIZUMAB
     Indication: NEOPLASM MALIGNANT
     Dosage: UNK, 1X/3 WEEKS
     Route: 041
     Dates: start: 20200314, end: 20200314
  3. TS-1 [Concomitant]
     Active Substance: GIMERACIL\OTERACIL\TEGAFUR
     Indication: NEOPLASM MALIGNANT
     Dosage: UNK, 1X/3 WEEKS
     Route: 048
     Dates: start: 20200314, end: 20200328
  4. G-LASTA [Suspect]
     Active Substance: PEGFILGRASTIM
     Indication: COLONY STIMULATING FACTOR THERAPY
     Dosage: UNK
     Route: 058
     Dates: start: 20200316, end: 20200316

REACTIONS (2)
  - Chemotherapy [Unknown]
  - Off label use [Unknown]
